FAERS Safety Report 8480353-8 (Version None)
Quarter: 2012Q3

REPORT INFORMATION
  Report Type: 
  Country: None (occurrence: None)
  Receive Date: 20120701
  Receipt Date: 20120529
  Transmission Date: 20120928
  Serious: Yes (Hospitalization, Other)
  Sender: FDA-Public Use
  Company Number: ES-ELI_LILLY_AND_COMPANY-ES201206007192

PATIENT
  Age: 28 Year
  Sex: Male

DRUGS (5)
  1. ZYPREXA [Suspect]
     Dosage: UNK, UNKNOWN
  2. CLONAZEPAM [Concomitant]
  3. LORAZEPAM [Concomitant]
  4. OLANZAPINE [Suspect]
  5. CITALOPRAM HYDROBROMIDE [Concomitant]

REACTIONS (5)
  - DEPRESSED MOOD [None]
  - SUICIDAL IDEATION [None]
  - HOSPITALISATION [None]
  - FEELING ABNORMAL [None]
  - AGGRESSION [None]
